FAERS Safety Report 20761141 (Version 2)
Quarter: 2022Q2

REPORT INFORMATION
  Report Type: Spontaneous
  Country: NL (occurrence: NL)
  Receive Date: 20220428
  Receipt Date: 20220505
  Transmission Date: 20220721
  Serious: Yes (Hospitalization, Other)
  Sender: FDA-Public Use
  Company Number: NL-CELLTRION INC.-2022NL004691

PATIENT

DRUGS (47)
  1. RITUXIMAB [Suspect]
     Active Substance: RITUXIMAB
     Indication: Autoinflammatory disease
     Dosage: 375 MG/M2, ( X 1)
     Dates: start: 201212
  2. RITUXIMAB [Suspect]
     Active Substance: RITUXIMAB
     Indication: Vasculitis
     Dosage: 375 MG/M2 ( X 2)
     Dates: start: 201205
  3. RITUXIMAB [Suspect]
     Active Substance: RITUXIMAB
     Dosage: 375 MG/M2
     Route: 042
     Dates: start: 201205
  4. RITUXIMAB [Suspect]
     Active Substance: RITUXIMAB
     Dosage: 375 MG/M2
     Route: 042
     Dates: start: 201212
  5. INFLIXIMAB [Suspect]
     Active Substance: INFLIXIMAB
     Indication: Vasculitis
     Dosage: 10 MG/KG, 0.5/WEEK
     Route: 065
  6. INFLIXIMAB [Suspect]
     Active Substance: INFLIXIMAB
     Dosage: 10 MG/KG, 0.5/WEEK
     Route: 065
  7. INFLIXIMAB [Suspect]
     Active Substance: INFLIXIMAB
     Dosage: 5 MG/KG, 0.5/WEEK
     Route: 065
  8. INFLIXIMAB [Suspect]
     Active Substance: INFLIXIMAB
     Dosage: 5 MG/KG/2 WK
     Dates: start: 201204, end: 201207
  9. INFLIXIMAB [Suspect]
     Active Substance: INFLIXIMAB
     Dosage: 10 MG/KG/2 WK
     Dates: start: 201209, end: 201211
  10. INFLIXIMAB [Suspect]
     Active Substance: INFLIXIMAB
     Dosage: 10 MG/KG/2 WK
     Dates: start: 201212, end: 201301
  11. INFLIXIMAB [Suspect]
     Active Substance: INFLIXIMAB
     Dosage: UNK
     Dates: start: 201304, end: 201306
  12. METHOTREXATE [Suspect]
     Active Substance: METHOTREXATE
     Indication: Autoinflammatory disease
     Dosage: 2.5 MG, WEEKLY
     Dates: start: 201212, end: 201301
  13. METHOTREXATE [Suspect]
     Active Substance: METHOTREXATE
     Indication: Prophylaxis against graft versus host disease
     Dosage: 2.5 MG, WEEKLY
     Route: 065
  14. METHOTREXATE [Suspect]
     Active Substance: METHOTREXATE
     Indication: Vasculitis
  15. CYCLOSPORINE [Suspect]
     Active Substance: CYCLOSPORINE
     Indication: Prophylaxis against graft versus host disease
  16. HUMAN IMMUNOGLOBULIN G [Suspect]
     Active Substance: HUMAN IMMUNOGLOBULIN G
     Indication: Autoinflammatory disease
     Dosage: 2 G/KG PER 4 WEEK
     Dates: start: 201401
  17. HUMAN IMMUNOGLOBULIN G [Suspect]
     Active Substance: HUMAN IMMUNOGLOBULIN G
     Dosage: 2 G/KG PER 4 WEEK
     Route: 042
     Dates: start: 201402, end: 201405
  18. HUMAN IMMUNOGLOBULIN G [Suspect]
     Active Substance: HUMAN IMMUNOGLOBULIN G
     Dosage: 2 G/KG PER 4 WEEK
     Route: 042
     Dates: start: 201209, end: 201211
  19. HUMAN IMMUNOGLOBULIN G [Suspect]
     Active Substance: HUMAN IMMUNOGLOBULIN G
     Dosage: 2 G/KG PER 4 WEEK
     Route: 042
     Dates: start: 201204, end: 201207
  20. HUMAN IMMUNOGLOBULIN G [Suspect]
     Active Substance: HUMAN IMMUNOGLOBULIN G
     Dosage: 2 G/KG PER 4 WEEK
     Route: 042
     Dates: start: 201209, end: 201211
  21. HUMAN IMMUNOGLOBULIN G [Suspect]
     Active Substance: HUMAN IMMUNOGLOBULIN G
     Dosage: 2 G/KG PER 4 WEEK
     Route: 042
     Dates: start: 201402, end: 201405
  22. INFLIXIMAB [Suspect]
     Active Substance: INFLIXIMAB
     Indication: Autoinflammatory disease
     Dosage: 5 MG/KG
     Dates: start: 201204, end: 201207
  23. INFLIXIMAB [Suspect]
     Active Substance: INFLIXIMAB
     Indication: Vasculitis
     Dosage: 10 MG/KG, 2X/WEEK
     Dates: start: 201212, end: 201301
  24. INFLIXIMAB [Suspect]
     Active Substance: INFLIXIMAB
     Dosage: UNK
     Dates: start: 201304, end: 201306
  25. INFLIXIMAB [Suspect]
     Active Substance: INFLIXIMAB
     Dosage: 10 MG/KG, 2X/WEEK
     Route: 065
     Dates: start: 201209, end: 201211
  26. METHYLPREDNISOLONE [Suspect]
     Active Substance: METHYLPREDNISOLONE
     Indication: Autoinflammatory disease
     Dosage: 15 MG/KG
     Route: 042
     Dates: start: 201203
  27. METHYLPREDNISOLONE [Suspect]
     Active Substance: METHYLPREDNISOLONE
     Indication: Vasculitis
     Dosage: 25 MG/KG
     Route: 042
     Dates: start: 201208
  28. METHYLPREDNISOLONE [Suspect]
     Active Substance: METHYLPREDNISOLONE
     Indication: Pyrexia
     Dosage: 25 MG/KG
     Route: 042
  29. METHYLPREDNISOLONE [Suspect]
     Active Substance: METHYLPREDNISOLONE
     Dosage: 15 MG/KG
     Route: 042
  30. PREDNISOLONE [Suspect]
     Active Substance: PREDNISOLONE
     Indication: Vasculitis
     Dosage: 1-2 MG/KG
     Route: 065
  31. PREDNISOLONE [Suspect]
     Active Substance: PREDNISOLONE
     Dosage: 5 MG/KG, EVERY 0.5 DAY
     Route: 065
  32. PREDNISOLONE [Suspect]
     Active Substance: PREDNISOLONE
     Dosage: 1MG/KG
     Route: 065
  33. PREDNISOLONE [Suspect]
     Active Substance: PREDNISOLONE
     Dosage: 5 MG/KG, EVERY 0.5 DAY
     Route: 065
  34. SIROLIMUS [Concomitant]
     Active Substance: SIROLIMUS
     Indication: Autoinflammatory disease
     Dosage: 1.5 MG, 1X/DAY
     Dates: start: 201402, end: 201405
  35. SIROLIMUS [Concomitant]
     Active Substance: SIROLIMUS
     Dosage: UNK
  36. FLUDARABINE [Concomitant]
     Active Substance: FLUDARABINE PHOSPHATE
     Indication: Autoinflammatory disease
     Dosage: UNK
     Dates: start: 201302
  37. THYMOCYTE IMMUNE GLOBULIN NOS [Concomitant]
     Active Substance: THYMOCYTE IMMUNE GLOBULIN NOS
     Indication: Autoinflammatory disease
     Dosage: UNK
     Dates: start: 201302
  38. DESLORATADINE [Concomitant]
     Active Substance: DESLORATADINE
     Indication: Autoinflammatory disease
     Dosage: 2.5 MG, 2X/DAY
     Dates: start: 201401
  39. DESLORATADINE [Concomitant]
     Active Substance: DESLORATADINE
     Dosage: UNK
  40. PREDNISONE [Concomitant]
     Active Substance: PREDNISONE
     Indication: Autoinflammatory disease
     Dosage: 5 MG, 2X/DAY
     Dates: start: 201204, end: 201207
  41. PREDNISONE [Concomitant]
     Active Substance: PREDNISONE
     Dosage: 5 MG, 2X/DAY
     Dates: start: 201209, end: 201211
  42. PREDNISONE [Concomitant]
     Active Substance: PREDNISONE
     Dosage: 1-2 MG/KG
     Dates: start: 201304, end: 201306
  43. PREDNISONE [Concomitant]
     Active Substance: PREDNISONE
     Dosage: PREDNISONE TAPERING
     Dates: start: 201308, end: 201312
  44. PREDNISONE [Concomitant]
     Active Substance: PREDNISONE
     Dosage: 5 MG, 2X/DAY
     Dates: start: 201401
  45. PREDNISONE [Concomitant]
     Active Substance: PREDNISONE
     Dosage: 5 MG, LESS THAN OR EQUAL TO 2X/DAY
     Dates: start: 201402, end: 201405
  46. TREOSULFAN [Concomitant]
     Active Substance: TREOSULFAN
     Indication: Autoinflammatory disease
     Dosage: UNK
     Dates: start: 201302
  47. FLUCONAZOLE [Concomitant]
     Active Substance: FLUCONAZOLE

REACTIONS (11)
  - Failure to thrive [Unknown]
  - Drug resistance [Unknown]
  - Off label use [Unknown]
  - Gastrointestinal inflammation [Unknown]
  - Vasculitis [Unknown]
  - Ill-defined disorder [Unknown]
  - Pyrexia [Unknown]
  - Viral infection [Unknown]
  - Viral infection [Unknown]
  - Gastrointestinal viral infection [Unknown]
  - Off label use [Unknown]

NARRATIVE: CASE EVENT DATE: 20120401
